FAERS Safety Report 15542953 (Version 6)
Quarter: 2019Q1

REPORT INFORMATION
  Report Type: Spontaneous
  Country: JP (occurrence: JP)
  Receive Date: 20181023
  Receipt Date: 20190226
  Transmission Date: 20190417
  Serious: Yes (Life-Threatening, Disabling)
  Sender: FDA-Public Use
  Company Number: JP-JNJFOC-20181003107

PATIENT
  Age: 48 Year
  Sex: Male
  Weight: 77 kg

DRUGS (5)
  1. TRAMCET [Concomitant]
     Active Substance: ACETAMINOPHEN\TRAMADOL
     Indication: TUMOUR COMPRESSION
     Route: 048
     Dates: start: 20180706, end: 20180920
  2. ALOXI [Concomitant]
     Active Substance: PALONOSETRON HYDROCHLORIDE
     Indication: PROPHYLAXIS OF NAUSEA AND VOMITING
     Route: 041
     Dates: start: 20180612, end: 20180913
  3. DECADRON [Concomitant]
     Active Substance: DEXAMETHASONE
     Indication: PROPHYLAXIS OF NAUSEA AND VOMITING
     Route: 048
     Dates: start: 20180612, end: 20180914
  4. DEXART [Concomitant]
     Active Substance: DEXAMETHASONE SODIUM PHOSPHATE
     Route: 041
     Dates: start: 20180912, end: 20180912
  5. YONDELIS [Suspect]
     Active Substance: TRABECTEDIN
     Indication: DEDIFFERENTIATED LIPOSARCOMA
     Dosage: CYCLE 1 TO 5
     Route: 041
     Dates: start: 20180612, end: 20180912

REACTIONS (4)
  - Acute kidney injury [Recovered/Resolved]
  - Rhabdomyolysis [Recovered/Resolved]
  - Capillary leak syndrome [Recovered/Resolved]
  - Febrile neutropenia [Recovered/Resolved]

NARRATIVE: CASE EVENT DATE: 20180920
